FAERS Safety Report 10792581 (Version 1)
Quarter: 2015Q1

REPORT INFORMATION
  Report Type: Spontaneous
  Country: US (occurrence: None)
  Receive Date: 20150211
  Receipt Date: 20150211
  Transmission Date: 20150721
  Serious: Yes (Hospitalization)
  Sender: FDA-Public Use
  Company Number: 1224850-2015-00009

PATIENT
  Age: 55 Year
  Sex: Male
  Weight: 99.4 kg

DRUGS (16)
  1. COREG [Concomitant]
     Active Substance: CARVEDILOL
  2. COLCHICINE. [Concomitant]
     Active Substance: COLCHICINE
  3. OXYCODONE [Concomitant]
     Active Substance: OXYCODONE
  4. MAGNESIUM [Concomitant]
     Active Substance: MAGNESIUM
  5. OMPRAZOLE [Concomitant]
     Active Substance: OMEPRAZOLE
  6. PHOSLO [Suspect]
     Active Substance: CALCIUM ACETATE
     Indication: CHRONIC KIDNEY DISEASE
     Dates: start: 201304, end: 20131108
  7. DELFLEX [Concomitant]
     Active Substance: CALCIUM CHLORIDE\DEXTROSE MONOHYDRATE\MAGNESIUM CHLORIDE\SODIUM CHLORIDE\SODIUM LACTATE
  8. CATAPRES [Concomitant]
     Active Substance: CLONIDINE HYDROCHLORIDE
  9. NORVASC [Concomitant]
     Active Substance: AMLODIPINE BESYLATE
  10. LIBERTY CYCLER [Concomitant]
     Active Substance: DEVICE
  11. LIBERTY CYCLER SET [Concomitant]
  12. OSCAL [Concomitant]
     Active Substance: CALCIUM CARBONATE
  13. NYSTATIN. [Concomitant]
     Active Substance: NYSTATIN
  14. PAXIL [Concomitant]
     Active Substance: PAROXETINE HYDROCHLORIDE
  15. PRINIVIL [Concomitant]
     Active Substance: LISINOPRIL
  16. ZOCOR [Concomitant]
     Active Substance: SIMVASTATIN

REACTIONS (6)
  - Peritonitis [None]
  - Inadequate aseptic technique in use of product [None]
  - White blood cell count increased [None]
  - Abdominal pain [None]
  - Catheter site infection [None]
  - Device related infection [None]

NARRATIVE: CASE EVENT DATE: 20131105
